FAERS Safety Report 23455297 (Version 2)
Quarter: 2024Q1

REPORT INFORMATION
  Report Type: Spontaneous
  Country: US (occurrence: US)
  Receive Date: 20240130
  Receipt Date: 20240206
  Transmission Date: 20240409
  Serious: Yes (Hospitalization)
  Sender: FDA-Public Use
  Company Number: US-ELI_LILLY_AND_COMPANY-US202401014000

PATIENT
  Age: 38 Year
  Sex: Female

DRUGS (4)
  1. ADCIRCA [Suspect]
     Active Substance: TADALAFIL
     Indication: Pulmonary arterial hypertension
     Dosage: 40 MG, DAILY
     Route: 048
     Dates: start: 202401
  2. ADCIRCA [Suspect]
     Active Substance: TADALAFIL
     Dosage: UNK
  3. TREPROSTINIL [Suspect]
     Active Substance: TREPROSTINIL
     Indication: Pulmonary arterial hypertension
     Dosage: 40.49 NG, DAILY (40.49 NG/KG/MIN)
     Route: 058
     Dates: start: 202310
  4. TREPROSTINIL [Suspect]
     Active Substance: TREPROSTINIL
     Dosage: 41.8 NG, DAILY
     Route: 058

REACTIONS (2)
  - Liver disorder [Unknown]
  - Abdominal pain [Unknown]
